FAERS Safety Report 8287019-8 (Version None)
Quarter: 2012Q2

REPORT INFORMATION
  Report Type: 
  Country: None (occurrence: None)
  Receive Date: 20120416
  Receipt Date: 20120402
  Transmission Date: 20120825
  Serious: Yes (Hospitalization)
  Sender: FDA-Public Use
  Company Number: BR-ROCHE-1056190

PATIENT
  Sex: Female
  Weight: 67 kg

DRUGS (5)
  1. MORPHINE [Concomitant]
     Indication: PAIN
     Route: 042
  2. PEGINTERFERON ALFA-2A [Suspect]
     Indication: HEPATITIS C
     Route: 058
     Dates: start: 20070101, end: 20080101
  3. RESPIDON [Concomitant]
     Indication: BIPOLAR DISORDER
     Route: 048
  4. IBUPROFEN [Concomitant]
     Indication: PAIN
  5. RIBAVIRIN [Concomitant]
     Indication: HEPATITIS C

REACTIONS (6)
  - NAUSEA [None]
  - SKIN DISORDER [None]
  - THROAT TIGHTNESS [None]
  - OCULAR HYPERAEMIA [None]
  - ALOPECIA [None]
  - MATERNAL EXPOSURE DURING PREGNANCY [None]
